FAERS Safety Report 21009435 (Version 6)
Quarter: 2022Q2

REPORT INFORMATION
  Report Type: Spontaneous
  Country: US (occurrence: US)
  Receive Date: 20220627
  Receipt Date: 20220627
  Transmission Date: 20220721
  Serious: No
  Sender: FDA-Public Use
  Company Number: ALC2021US003323

PATIENT
  Sex: Female

DRUGS (2)
  1. PATADAY ONCE DAILY RELIEF [Suspect]
     Active Substance: OLOPATADINE HYDROCHLORIDE
     Indication: Injury corneal
     Dosage: UNK
     Route: 065
     Dates: start: 20210512
  2. PATADAY ONCE DAILY RELIEF [Suspect]
     Active Substance: OLOPATADINE HYDROCHLORIDE
     Indication: Eye irritation

REACTIONS (3)
  - Eye pain [Recovering/Resolving]
  - Eye irritation [Recovered/Resolved]
  - Ocular hyperaemia [Recovering/Resolving]
